FAERS Safety Report 10960297 (Version 1)
Quarter: 2015Q1

REPORT INFORMATION
  Report Type: Spontaneous
  Country: US (occurrence: US)
  Receive Date: 20150327
  Receipt Date: 20150327
  Transmission Date: 20150721
  Serious: Yes (Other)
  Sender: FDA-Public Use
  Company Number: US-TEVA-549564USA

PATIENT
  Age: 61 Year
  Sex: Male

DRUGS (5)
  1. NIFEDIPINE. [Concomitant]
     Active Substance: NIFEDIPINE
  2. PAXIL [Concomitant]
     Active Substance: PAROXETINE HYDROCHLORIDE
  3. METOPROLOL [Concomitant]
     Active Substance: METOPROLOL
  4. SINGULAIR [Concomitant]
     Active Substance: MONTELUKAST SODIUM
  5. CLONIDINE. [Suspect]
     Active Substance: CLONIDINE
     Indication: PRODUCT USED FOR UNKNOWN INDICATION
     Dates: start: 20150315, end: 20150318

REACTIONS (10)
  - Wound secretion [Recovering/Resolving]
  - Application site irritation [Recovering/Resolving]
  - Pain in extremity [Not Recovered/Not Resolved]
  - Application site pruritus [Recovering/Resolving]
  - Application site pain [Recovering/Resolving]
  - Skin haemorrhage [Recovering/Resolving]
  - Pyrexia [Unknown]
  - Burns second degree [Recovering/Resolving]
  - Burns third degree [Recovering/Resolving]
  - Acne [Not Recovered/Not Resolved]

NARRATIVE: CASE EVENT DATE: 201503
